FAERS Safety Report 6643182-3 (Version None)
Quarter: 2010Q1

REPORT INFORMATION
  Report Type: 
  Country: None (occurrence: None)
  Receive Date: 20100319
  Receipt Date: 20100310
  Transmission Date: 20100710
  Serious: Yes (Hospitalization, Other)
  Sender: FDA-Public Use
  Company Number: PHHY2009CA54319

PATIENT
  Sex: Female

DRUGS (1)
  1. SANDOSTATIN [Suspect]
     Indication: CARCINOID SYNDROME
     Dosage: 20 MG, QMO
     Route: 030
     Dates: start: 20100106

REACTIONS (8)
  - ABDOMINAL PAIN [None]
  - FLATULENCE [None]
  - GAIT DISTURBANCE [None]
  - INJECTION SITE HAEMORRHAGE [None]
  - INJECTION SITE PAIN [None]
  - MALIGNANT TUMOUR EXCISION [None]
  - MOBILITY DECREASED [None]
  - MUSCULOSKELETAL PAIN [None]
